FAERS Safety Report 8825247 (Version 2)
Quarter: 2015Q1

REPORT INFORMATION
  Report Type: Report from Study
  Country: US (occurrence: US)
  Receive Date: 20121004
  Receipt Date: 20150119
  Transmission Date: 20150721
  Serious: Yes (Death, Hospitalization, Other)
  Sender: FDA-Public Use
  Company Number: US-ROCHE-1133455

PATIENT
  Age: 69 Year
  Sex: Female

DRUGS (28)
  1. ETOPOSIDE. [Concomitant]
     Active Substance: ETOPOSIDE
  2. METHYLPREDNISOLONE. [Concomitant]
     Active Substance: METHYLPREDNISOLONE
  3. BENADRYL [Concomitant]
     Active Substance: DIPHENHYDRAMINE HYDROCHLORIDE
     Route: 048
  4. MESNA. [Concomitant]
     Active Substance: MESNA
  5. ACYCLOVIR. [Concomitant]
     Active Substance: ACYCLOVIR
  6. VINCRISTINE [Concomitant]
     Active Substance: VINCRISTINE
  7. PREDNISONE. [Concomitant]
     Active Substance: PREDNISONE
  8. CYTARABINE. [Concomitant]
     Active Substance: CYTARABINE
  9. OSCAL [Concomitant]
     Active Substance: CALCIUM CARBONATE
  10. ADRIAMYCIN [Concomitant]
     Active Substance: DOXORUBICIN HYDROCHLORIDE
  11. MITOXANTRONE [Concomitant]
     Active Substance: MITOXANTRONE HYDROCHLORIDE
  12. PREMPRO [Concomitant]
     Active Substance: ESTROGENS, CONJUGATED\MEDROXYPROGESTERONE ACETATE
  13. TOPOTECAN [Concomitant]
     Active Substance: TOPOTECAN\TOPOTECAN HYDROCHLORIDE
     Dosage: 1.7 MG
     Route: 042
  14. ADVIL [Concomitant]
     Active Substance: IBUPROFEN
  15. IFOSFAMIDE. [Concomitant]
     Active Substance: IFOSFAMIDE
  16. CISPLATIN. [Concomitant]
     Active Substance: CISPLATIN
  17. DECADRON [Concomitant]
     Active Substance: DEXAMETHASONE
  18. DIGOXIN. [Concomitant]
     Active Substance: DIGOXIN
  19. BACTRIM [Concomitant]
     Active Substance: SULFAMETHOXAZOLE\TRIMETHOPRIM
  20. NICOTINE TRANSDERMAL SYSTEM [Concomitant]
     Active Substance: NICOTINE
  21. ZOFRAN [Concomitant]
     Active Substance: ONDANSETRON HYDROCHLORIDE
  22. DARVOCET [Concomitant]
     Active Substance: ACETAMINOPHEN\PROPOXYPHENE HYDROCHLORIDE
  23. ATIVAN [Concomitant]
     Active Substance: LORAZEPAM
     Route: 065
  24. RITUXAN [Suspect]
     Active Substance: RITUXIMAB
     Indication: DIFFUSE LARGE B-CELL LYMPHOMA
     Route: 042
  25. TEQUIN [Suspect]
     Active Substance: GATIFLOXACIN
     Indication: PRODUCT USED FOR UNKNOWN INDICATION
     Route: 065
  26. TAXOL [Concomitant]
     Active Substance: PACLITAXEL
     Route: 065
  27. TOPOTECAN [Concomitant]
     Active Substance: TOPOTECAN\TOPOTECAN HYDROCHLORIDE
     Dosage: 2.5 MG
     Route: 065
  28. TYLENOL [Concomitant]
     Active Substance: ACETAMINOPHEN

REACTIONS (23)
  - Herpes zoster [Unknown]
  - Productive cough [Unknown]
  - Pruritus [Unknown]
  - Weight decreased [Unknown]
  - Fatigue [Unknown]
  - Pyrexia [Unknown]
  - Diarrhoea [Unknown]
  - Asthenia [Unknown]
  - Death [Fatal]
  - Lymphadenopathy [Unknown]
  - Alopecia [Unknown]
  - Abdominal discomfort [Unknown]
  - Feeling abnormal [Unknown]
  - Cough [Unknown]
  - Pain [Unknown]
  - Lymph node palpable [Unknown]
  - Pneumonia [Recovering/Resolving]
  - Neutropenia [Unknown]
  - Hypoaesthesia [Unknown]
  - Rash pruritic [Unknown]
  - Depression [Unknown]
  - Lymph node palpable [Unknown]
  - Musculoskeletal discomfort [Unknown]

NARRATIVE: CASE EVENT DATE: 19950802
